FAERS Safety Report 19152125 (Version 2)
Quarter: 2024Q2

REPORT INFORMATION
  Report Type: Spontaneous
  Country: US (occurrence: US)
  Receive Date: 20210419
  Receipt Date: 20240515
  Transmission Date: 20240716
  Serious: No
  Sender: FDA-Public Use
  Company Number: US-SA-SAC20210416001080

PATIENT
  Sex: Female
  Weight: 69 kg

DRUGS (10)
  1. DUPIXENT [Suspect]
     Active Substance: DUPILUMAB
     Indication: Asthma
     Dosage: 300 MG, QOW
     Route: 058
     Dates: start: 20190122
  2. VERZENIO [Concomitant]
     Active Substance: ABEMACICLIB
  3. LETROZOLE [Concomitant]
     Active Substance: LETROZOLE
  4. DULERA [Concomitant]
     Active Substance: FORMOTEROL FUMARATE DIHYDRATE\MOMETASONE FUROATE
  5. CALCIUM CARBONATE [Concomitant]
     Active Substance: CALCIUM CARBONATE
  6. VENTOLIN HFA [Concomitant]
     Active Substance: ALBUTEROL SULFATE
  7. .ALPHA.-TOCOPHEROL [Concomitant]
     Active Substance: .ALPHA.-TOCOPHEROL
  8. IRON [Concomitant]
     Active Substance: IRON
  9. FISH OIL [Concomitant]
     Active Substance: FISH OIL
  10. COVID-19 VACCINE [Concomitant]

REACTIONS (1)
  - No adverse event [Unknown]
